FAERS Safety Report 13336554 (Version 3)
Quarter: 2017Q3

REPORT INFORMATION
  Report Type: Report from Study
  Country: US (occurrence: US)
  Receive Date: 20170315
  Receipt Date: 20170817
  Transmission Date: 20171127
  Serious: Yes (Hospitalization)
  Sender: FDA-Public Use
  Company Number: US-VANDA PHARMACEUTICALS, INC-2017TASUS001541

PATIENT
  Sex: Female

DRUGS (2)
  1. HETLIOZ [Suspect]
     Active Substance: TASIMELTEON
     Indication: NON-24-HOUR SLEEP-WAKE DISORDER
     Dosage: 20 MG, ONCE NIGHTLY
     Route: 048
     Dates: start: 2014
  2. HETLIOZ [Suspect]
     Active Substance: TASIMELTEON
     Dosage: 20 MG, ONCE NIGHTLY
     Route: 048
     Dates: start: 20140822

REACTIONS (2)
  - Diabetes mellitus inadequate control [Recovered/Resolved]
  - Insomnia [Unknown]
